FAERS Safety Report 19772226 (Version 1)
Quarter: 2021Q3

REPORT INFORMATION
  Report Type: Spontaneous
  Country: US (occurrence: US)
  Receive Date: 20210830
  Receipt Date: 20210830
  Transmission Date: 20211014
  Serious: No
  Sender: FDA-Public Use
  Company Number: None

PATIENT
  Sex: Male

DRUGS (1)
  1. CAPECITABINE 500MG NOVADOZ PHARMACEUTIACLS [Suspect]
     Active Substance: CAPECITABINE
     Indication: COLON CANCER
     Dosage: 1500AM 2000PM TWICE DAILY BY MOUTH
     Route: 048
     Dates: start: 202107

REACTIONS (1)
  - Feeling cold [None]
